FAERS Safety Report 6940637-9 (Version None)
Quarter: 2010Q3

REPORT INFORMATION
  Report Type: 
  Country: None (occurrence: None)
  Receive Date: 20100820
  Receipt Date: 20100810
  Transmission Date: 20110219
  Serious: Yes (Other)
  Sender: FDA-Public Use
  Company Number: US-1183015

PATIENT
  Age: 55 Year
  Sex: Female
  Weight: 97.5234 kg

DRUGS (4)
  1. PATANASE [Suspect]
     Indication: RHINITIS
     Dosage: NASAL
     Route: 045
  2. EFFEXOR XR [Concomitant]
  3. ESTRADIOL [Concomitant]
  4. ACIPHEX [Concomitant]

REACTIONS (2)
  - AGEUSIA [None]
  - ANOSMIA [None]
